FAERS Safety Report 6591346-X (Version None)
Quarter: 2010Q1

REPORT INFORMATION
  Report Type: 
  Country: None (occurrence: None)
  Receive Date: 20100219
  Receipt Date: 20100211
  Transmission Date: 20100710
  Serious: Yes (Congenital Anomaly)
  Sender: FDA-Public Use
  Company Number: IE-ABBOTT-10P-229-0625904-00

PATIENT
  Sex: Female

DRUGS (1)
  1. EPILIM TABLETS [Suspect]
     Indication: DRUG EXPOSURE DURING PREGNANCY
     Route: 064

REACTIONS (12)
  - BALANCE DISORDER [None]
  - BODY DYSMORPHIC DISORDER [None]
  - COGNITIVE DISORDER [None]
  - CONGENITAL EYE DISORDER [None]
  - CONGENITAL HAND MALFORMATION [None]
  - CONGENITAL NOSE MALFORMATION [None]
  - DRUG EXPOSURE DURING PREGNANCY [None]
  - FINGER AMPUTATION [None]
  - FOETAL ANTICONVULSANT SYNDROME [None]
  - GROWTH RETARDATION [None]
  - MOTOR DYSFUNCTION [None]
  - SKULL MALFORMATION [None]
